FAERS Safety Report 6033024-1 (Version None)
Quarter: 2009Q1

REPORT INFORMATION
  Report Type: 
  Country: None (occurrence: None)
  Receive Date: 20090105
  Receipt Date: 20080515
  Transmission Date: 20090719
  Serious: Yes (Hospitalization)
  Sender: FDA-Public Use
  Company Number: US-000910

PATIENT
  Sex: Female

DRUGS (2)
  1. PROHANCE [Suspect]
     Indication: NUCLEAR MAGNETIC RESONANCE IMAGING
     Dosage: 16ML QD INTRAVENOUS
     Route: 042
     Dates: start: 20080502, end: 20080502
  2. PROHANCE [Suspect]
     Indication: PITUITARY TUMOUR BENIGN
     Dosage: 16ML QD INTRAVENOUS
     Route: 042
     Dates: start: 20080502, end: 20080502

REACTIONS (1)
  - ANAPHYLACTOID REACTION [None]
